FAERS Safety Report 16055825 (Version 2)
Quarter: 2019Q3

REPORT INFORMATION
  Report Type: Spontaneous
  Country: IN (occurrence: IN)
  Receive Date: 20190311
  Receipt Date: 20190910
  Transmission Date: 20191004
  Serious: Yes (Other)
  Sender: FDA-Public Use
  Company Number: IN-ROCHE-2274239

PATIENT
  Age: 47 Year
  Sex: Male

DRUGS (1)
  1. AVASTIN [Suspect]
     Active Substance: BEVACIZUMAB
     Indication: RETINAL VEIN OCCLUSION
     Dosage: 1.25 MG/0.05 ML
     Route: 050

REACTIONS (1)
  - Herpes ophthalmic [Recovered/Resolved]
